FAERS Safety Report 7508700-1 (Version None)
Quarter: 2011Q2

REPORT INFORMATION
  Report Type: 
  Country: None (occurrence: None)
  Receive Date: 20110527
  Receipt Date: 20100803
  Transmission Date: 20111010
  Serious: No
  Sender: FDA-Public Use
  Company Number: A0873758A

PATIENT
  Age: 62 Year
  Sex: Female

DRUGS (9)
  1. THEOPHYLLINE [Concomitant]
  2. COUGH SYRUP [Concomitant]
  3. PREDNISONE [Suspect]
     Dosage: 20MG AS REQUIRED
  4. SYNTHROID [Concomitant]
  5. VENTOLIN [Suspect]
     Indication: ASTHMA
     Dosage: 1PUFF FIVE TIMES PER DAY
     Route: 055
     Dates: start: 19700101
  6. PREDNISONE [Concomitant]
  7. PROAIR HFA [Concomitant]
  8. FLOVENT [Concomitant]
  9. PROVENTIL [Concomitant]

REACTIONS (4)
  - COUGH [None]
  - PRODUCT QUALITY ISSUE [None]
  - OVERDOSE [None]
  - SENSORY DISTURBANCE [None]
